FAERS Safety Report 19960156 (Version 1)
Quarter: 2021Q4

REPORT INFORMATION
  Report Type: Spontaneous
  Country: US (occurrence: US)
  Receive Date: 20211015
  Receipt Date: 20211015
  Transmission Date: 20220303
  Serious: No
  Sender: FDA-Public Use
  Company Number: US-MYLANLABS-2021M1065203

PATIENT
  Sex: Male
  Weight: 75 kg

DRUGS (2)
  1. GLATIRAMER ACETATE [Suspect]
     Active Substance: GLATIRAMER ACETATE
     Indication: Multiple sclerosis
     Dosage: THREE TIMES A WEEK
     Route: 058
  2. DEVICE [Suspect]
     Active Substance: DEVICE
     Dosage: THREE TIMES A WEEK
     Route: 058

REACTIONS (2)
  - Device issue [Not Recovered/Not Resolved]
  - Injection site pain [Recovering/Resolving]
